FAERS Safety Report 5347061-3 (Version None)
Quarter: 2007Q2

REPORT INFORMATION
  Report Type: 
  Country: None (occurrence: None)
  Receive Date: 20070604
  Receipt Date: 20070529
  Transmission Date: 20071010
  Serious: Yes (Other)
  Sender: FDA-Public Use
  Company Number: 2007SP010550

PATIENT
  Age: 36 Year
  Sex: Male
  Weight: 104.7809 kg

DRUGS (2)
  1. PEG-INTRON [Suspect]
     Indication: HEPATITIS C
     Dosage: ;SC
     Route: 058
     Dates: start: 20070303
  2. RIBASPHERE [Suspect]
     Indication: HEPATITIS C
     Dosage: ; PO
     Route: 048
     Dates: start: 20070303

REACTIONS (8)
  - CONVULSION [None]
  - DECREASED APPETITE [None]
  - DEHYDRATION [None]
  - DIZZINESS [None]
  - INSOMNIA [None]
  - LOSS OF CONSCIOUSNESS [None]
  - TONGUE BITING [None]
  - WEIGHT DECREASED [None]
